FAERS Safety Report 9061640 (Version 1)
Quarter: 2013Q1

REPORT INFORMATION
  Report Type: Spontaneous
  Country: US (occurrence: None)
  Receive Date: 20130211
  Receipt Date: 20130211
  Transmission Date: 20140127
  Serious: Yes (Hospitalization)
  Sender: FDA-Public Use
  Company Number: None

PATIENT
  Age: 67 Year
  Sex: Male
  Weight: 65.1 kg

DRUGS (2)
  1. CLOPIDOGREL [Suspect]
     Route: 048
     Dates: start: 20121228, end: 20130102
  2. ASPIRIN/DIPYRIDAMOLE [Suspect]
     Dosage: 1 TAB
     Route: 048
     Dates: start: 20120201, end: 20121227

REACTIONS (2)
  - Anaemia [None]
  - Gastric haemorrhage [None]
